FAERS Safety Report 7481151-4 (Version None)
Quarter: 2011Q2

REPORT INFORMATION
  Report Type: 
  Country: None (occurrence: None)
  Receive Date: 20110516
  Receipt Date: 20110502
  Transmission Date: 20111010
  Serious: Yes (Other)
  Sender: FDA-Public Use
  Company Number: PHEH2008US01286

PATIENT
  Sex: Male

DRUGS (2)
  1. IBUPROFEN [Concomitant]
     Dosage: 200 MG, UNK
  2. DIOVAN HCT [Suspect]
     Indication: HYPERTENSION
     Dosage: 1 DF, QD
     Dates: start: 20060101

REACTIONS (10)
  - CELLULITIS [None]
  - HYPERSENSITIVITY [None]
  - WEIGHT DECREASED [None]
  - BLOOD PRESSURE DECREASED [None]
  - PAIN IN EXTREMITY [None]
  - ARTHRALGIA [None]
  - ATROPHY [None]
  - ABASIA [None]
  - LIMB DISCOMFORT [None]
  - ATRIAL FIBRILLATION [None]
